FAERS Safety Report 8588688-5 (Version None)
Quarter: 2012Q3

REPORT INFORMATION
  Report Type: 
  Country: None (occurrence: None)
  Receive Date: 20120813
  Receipt Date: 20120807
  Transmission Date: 20120928
  Serious: Yes (Other)
  Sender: FDA-Public Use
  Company Number: PHHY2012JP069004

PATIENT
  Sex: Female

DRUGS (1)
  1. ZOMETA [Suspect]
     Indication: METASTASES TO BONE
     Dosage: UNK, EVERY THREE WEEKS
     Route: 041

REACTIONS (7)
  - STRABISMUS [None]
  - OSTEONECROSIS OF JAW [None]
  - GINGIVAL SWELLING [None]
  - OTORRHOEA [None]
  - HEARING IMPAIRED [None]
  - PRIMARY SEQUESTRUM [None]
  - RHINITIS [None]
